FAERS Safety Report 8247131-6 (Version None)
Quarter: 2012Q1

REPORT INFORMATION
  Report Type: 
  Country: None (occurrence: None)
  Receive Date: 20120330
  Receipt Date: 20120320
  Transmission Date: 20120608
  Serious: Yes (Hospitalization)
  Sender: FDA-Public Use
  Company Number: HU-ROCHE-1051378

PATIENT
  Weight: 80 kg

DRUGS (5)
  1. ACTEMRA [Suspect]
     Indication: RHEUMATOID ARTHRITIS
     Route: 042
     Dates: start: 20110119
  2. METHOTREXATE [Concomitant]
     Route: 048
     Dates: start: 20091209
  3. OMEPRAZOLE [Concomitant]
     Route: 048
  4. FOLIC ACID [Concomitant]
     Route: 048
     Dates: start: 20091012
  5. AMILORIDE HYDROCHLORIDE [Concomitant]
     Route: 048
     Dates: start: 20110401

REACTIONS (1)
  - RHEUMATOID ARTHRITIS [None]
